FAERS Safety Report 10610301 (Version 3)
Quarter: 2015Q1

REPORT INFORMATION
  Report Type: Spontaneous
  Country: JP (occurrence: JP)
  Receive Date: 20141126
  Receipt Date: 20150204
  Transmission Date: 20150720
  Serious: Yes (Other)
  Sender: FDA-Public Use
  Company Number: JP-EISAI MEDICAL RESEARCH-EC-2014-001126

PATIENT
  Age: 60 Year
  Sex: Male

DRUGS (7)
  1. DEPAKENE [Suspect]
     Active Substance: VALPROIC ACID
     Dosage: 1200MG/DAY
     Route: 048
     Dates: start: 201103
  2. EXCEGRAN [Suspect]
     Active Substance: ZONISAMIDE
     Dosage: 500MG/DAY
     Route: 048
  3. EXCEGRAN [Suspect]
     Active Substance: ZONISAMIDE
     Dosage: 600MG/DAY
     Route: 048
     Dates: end: 201103
  4. EXCEGRAN [Suspect]
     Active Substance: ZONISAMIDE
     Dosage: 100MG/DAY
     Route: 048
     Dates: start: 201103
  5. DEPAKENE [Suspect]
     Active Substance: VALPROIC ACID
     Indication: EPILEPSY
     Dosage: 800MG/DAY
     Route: 048
  6. DEPAKENE [Suspect]
     Active Substance: VALPROIC ACID
     Dosage: 1600MG/DAY
     Route: 048
     Dates: end: 201103
  7. EXCEGRAN [Suspect]
     Active Substance: ZONISAMIDE
     Indication: EPILEPSY
     Dosage: 200MG/DAY
     Route: 048

REACTIONS (9)
  - Pneumonia aspiration [None]
  - Device related infection [None]
  - Treatment noncompliance [None]
  - Dehydration [None]
  - Cognitive disorder [Not Recovered/Not Resolved]
  - Dysphagia [Not Recovered/Not Resolved]
  - Decreased appetite [Unknown]
  - Blood pressure decreased [None]
  - Depressed level of consciousness [Not Recovered/Not Resolved]

NARRATIVE: CASE EVENT DATE: 201103
